FAERS Safety Report 9492409 (Version 1)
Quarter: 2013Q3

REPORT INFORMATION
  Report Type: Spontaneous
  Country: US (occurrence: US)
  Receive Date: 20130830
  Receipt Date: 20130830
  Transmission Date: 20140515
  Serious: Yes (Other)
  Sender: FDA-Public Use
  Company Number: US-BRISTOL-MYERS SQUIBB COMPANY-19205418

PATIENT
  Age: 42 Year
  Sex: Male

DRUGS (3)
  1. SPRYCEL [Suspect]
     Dosage: REDUCED TO 70MG
     Dates: start: 201302, end: 20130814
  2. LANTUS [Concomitant]
  3. NOVOLOG [Concomitant]

REACTIONS (3)
  - Retinal tear [Unknown]
  - Eye haemorrhage [Unknown]
  - Headache [Recovering/Resolving]
